FAERS Safety Report 23946123 (Version 1)
Quarter: 2024Q2

REPORT INFORMATION
  Report Type: Spontaneous
  Country: None (occurrence: RU)
  Receive Date: 20240606
  Receipt Date: 20240606
  Transmission Date: 20240717
  Serious: Yes (Other)
  Sender: FDA-Public Use
  Company Number: RU-CATALYST PHARMACEUTICALS, INC-RU-CATA-24-00475

PATIENT
  Age: 8 Year
  Sex: Male

DRUGS (1)
  1. AMIFAMPRIDINE [Suspect]
     Active Substance: AMIFAMPRIDINE
     Indication: Congenital myasthenic syndrome
     Dosage: DAILY DOSE OF 15 MG
     Route: 065

REACTIONS (3)
  - Generalised tonic-clonic seizure [Recovering/Resolving]
  - Vision blurred [Recovering/Resolving]
  - Off label use [Unknown]
